FAERS Safety Report 4682610-X (Version None)
Quarter: 2005Q2

REPORT INFORMATION
  Report Type: 
  Country: None (occurrence: None)
  Receive Date: 20050606
  Receipt Date: 20050526
  Transmission Date: 20051028
  Serious: Yes (Other)
  Sender: FDA-Public Use
  Company Number: PHBS2005TR07699

PATIENT
  Age: 45 Year
  Sex: Female

DRUGS (1)
  1. CARBAMAZEPINE [Suspect]
     Indication: EPILEPSY
     Dosage: 600 MG/DAY
     Route: 065

REACTIONS (15)
  - ASTHENIA [None]
  - BACK PAIN [None]
  - BLOOD 25-HYDROXYCHOLECALCIFEROL DECREASED [None]
  - BLOOD ALKALINE PHOSPHATASE INCREASED [None]
  - BLOOD CALCIUM DECREASED [None]
  - BLOOD PARATHYROID HORMONE INCREASED [None]
  - BLOOD PHOSPHORUS DECREASED [None]
  - BONE METABOLISM DISORDER [None]
  - BONE PAIN [None]
  - BONE SCAN ABNORMAL [None]
  - CONVULSION [None]
  - DIZZINESS [None]
  - FATIGUE [None]
  - OSTEOMALACIA [None]
  - URINE CALCIUM DECREASED [None]
